FAERS Safety Report 17280044 (Version 1)
Quarter: 2020Q1

REPORT INFORMATION
  Report Type: Spontaneous
  Country: US (occurrence: US)
  Receive Date: 20200117
  Receipt Date: 20200117
  Transmission Date: 20200409
  Serious: No
  Sender: FDA-Public Use
  Company Number: US-SHIRE-US202001216

PATIENT
  Sex: Male

DRUGS (1)
  1. ADDERALL XR [Suspect]
     Active Substance: AMPHETAMINE ASPARTATE\AMPHETAMINE SULFATE\DEXTROAMPHETAMINE SACCHARATE\DEXTROAMPHETAMINE SULFATE
     Indication: PRODUCT USED FOR UNKNOWN INDICATION
     Dosage: UNK
     Route: 065
     Dates: start: 2016, end: 2019

REACTIONS (6)
  - Influenza [Unknown]
  - Hypoaesthesia [Recovering/Resolving]
  - Pain in extremity [Unknown]
  - Fatigue [Unknown]
  - Skin discolouration [Recovering/Resolving]
  - Nasopharyngitis [Unknown]
